FAERS Safety Report 20600409 (Version 2)
Quarter: 2022Q1

REPORT INFORMATION
  Report Type: Report from Study
  Country: EG (occurrence: EG)
  Receive Date: 20220316
  Receipt Date: 20220321
  Transmission Date: 20220424
  Serious: Yes (Other)
  Sender: FDA-Public Use
  Company Number: EG-NOVARTISPH-NVSC2022EG057012

PATIENT
  Age: 46 Year
  Sex: Male

DRUGS (8)
  1. ENTRESTO [Suspect]
     Active Substance: SACUBITRIL\VALSARTAN
     Indication: Cardiac failure
     Dosage: 1 DOSAGE FORM (50 MG), BID
     Route: 048
     Dates: start: 20210315, end: 202106
  2. ENTRESTO [Suspect]
     Active Substance: SACUBITRIL\VALSARTAN
     Dosage: 1 DOSAGE FORM (50 MG), BID
     Route: 048
     Dates: start: 202108
  3. ENTRESTO [Suspect]
     Active Substance: SACUBITRIL\VALSARTAN
     Dosage: 1 DOSAGE FORM (50 MG), BID
     Route: 048
     Dates: start: 20220309
  4. BISOPROLOL FUMARATE [Concomitant]
     Active Substance: BISOPROLOL FUMARATE
     Indication: Heart rate irregular
     Dosage: 2.5 MG, QD (1/2 TABLET)
     Route: 065
     Dates: start: 20211014
  5. LASIX [Concomitant]
     Active Substance: FUROSEMIDE
     Indication: Polyuria
     Dosage: 40 MG, QD
     Route: 065
     Dates: start: 202110
  6. LASIX [Concomitant]
     Active Substance: FUROSEMIDE
     Dosage: 45 MG, QD (1 TAB/DAY)
     Route: 065
  7. SPECTONE [Concomitant]
     Indication: Product used for unknown indication
     Dosage: 25 MG, QD (1 TAB/DAY, POST PRANDIAL)
     Route: 065
     Dates: start: 202110
  8. CONTROLOC [Concomitant]
     Active Substance: PANTOPRAZOLE SODIUM
     Indication: Prophylaxis
     Dosage: 40 MG, QD (1 TAB PER DAY, STOPPED AFTER 3 MONTHS FROM STARTING ON THE MEDICATION)
     Route: 065
     Dates: start: 202110

REACTIONS (16)
  - Mitral valve incompetence [Recovering/Resolving]
  - Aortic valve incompetence [Recovering/Resolving]
  - Insomnia [Recovered/Resolved]
  - Dyspnoea [Recovered/Resolved]
  - Gait disturbance [Recovered/Resolved]
  - Movement disorder [Recovered/Resolved]
  - Ejection fraction decreased [Recovering/Resolving]
  - Headache [Recovered/Resolved]
  - Blood pressure increased [Recovered/Resolved]
  - Gastrointestinal disorder [Recovered/Resolved]
  - Gastrointestinal pain [Recovered/Resolved]
  - Flatulence [Recovered/Resolved]
  - Stress [Recovered/Resolved]
  - Nasopharyngitis [Recovered/Resolved]
  - Rhinorrhoea [Recovered/Resolved]
  - Pyrexia [Recovered/Resolved]

NARRATIVE: CASE EVENT DATE: 20210601
